FAERS Safety Report 25815286 (Version 1)
Quarter: 2025Q3

REPORT INFORMATION
  Report Type: Spontaneous
  Country: US (occurrence: US)
  Receive Date: 20250918
  Receipt Date: 20250918
  Transmission Date: 20251021
  Serious: No
  Sender: AMGEN
  Company Number: US-AMGEN-USASP2025182761

PATIENT
  Age: 85 Year
  Sex: Female

DRUGS (2)
  1. REPATHA [Suspect]
     Active Substance: EVOLOCUMAB
     Indication: Blood cholesterol abnormal
     Route: 058
     Dates: start: 2020
  2. LEQVIO [Concomitant]
     Active Substance: INCLISIRAN SODIUM

REACTIONS (2)
  - Therapeutic product effect decreased [Unknown]
  - Low density lipoprotein increased [Unknown]
